FAERS Safety Report 9339073 (Version 3)
Quarter: 2013Q4

REPORT INFORMATION
  Report Type: Spontaneous
  Country: US (occurrence: US)
  Receive Date: 20130610
  Receipt Date: 20131231
  Transmission Date: 20140711
  Serious: Yes (Hospitalization, Other)
  Sender: FDA-Public Use
  Company Number: US-009507513-1305USA017831

PATIENT
  Sex: Female

DRUGS (5)
  1. FOSAMAX [Suspect]
     Indication: OSTEOPOROSIS PROPHYLAXIS
     Dosage: 70 MG, QW
     Route: 048
     Dates: start: 2003
  2. FOSAMAX PLUS D [Suspect]
     Indication: OSTEOPOROSIS PROPHYLAXIS
     Dosage: 70 MG-2800 UNIT, QW
     Route: 048
     Dates: end: 2010
  3. ALENDRONATE SODIUM [Suspect]
     Indication: OSTEOPOROSIS PROPHYLAXIS
     Dosage: 70 MG, QW
     Route: 048
     Dates: start: 2010, end: 2012
  4. VITAMINS (UNSPECIFIED) [Concomitant]
     Dosage: 1 DF, QD
  5. CALCIUM (UNSPECIFIED) (+) VITAMIN D (UNSPECIFIED) [Concomitant]
     Dosage: 2 DF, QD

REACTIONS (20)
  - Femur fracture [Unknown]
  - Intramedullary rod insertion [Unknown]
  - Bladder transitional cell carcinoma [Unknown]
  - Bladder neoplasm surgery [Unknown]
  - Basal cell carcinoma [Unknown]
  - Calcium deficiency [Unknown]
  - Borderline glaucoma [Unknown]
  - Senile osteoporosis [Unknown]
  - Open angle glaucoma [Unknown]
  - Plantar fasciitis [Unknown]
  - Seborrhoeic keratosis [Unknown]
  - Large intestine polyp [Unknown]
  - Conjunctivitis [Unknown]
  - Blood glucose abnormal [Unknown]
  - Orthostatic hypotension [Unknown]
  - Hypotension [Recovering/Resolving]
  - Vascular calcification [Unknown]
  - Dizziness [Unknown]
  - Gastritis [Unknown]
  - Arthralgia [Unknown]
